FAERS Safety Report 5831417-6 (Version None)
Quarter: 2008Q3

REPORT INFORMATION
  Report Type: 
  Country: None (occurrence: None)
  Receive Date: 20080801
  Receipt Date: 20080724
  Transmission Date: 20090109
  Serious: Yes (Hospitalization, Other)
  Sender: FDA-Public Use
  Company Number: US-PFIZER INC-2008050740

PATIENT
  Sex: Female
  Weight: 65.8 kg

DRUGS (9)
  1. CELEBREX [Suspect]
     Indication: ARTHRITIS
  2. CENTRUM SILVER [Concomitant]
  3. GAS-X [Concomitant]
  4. MAXZIDE [Concomitant]
  5. LOVAZA [Concomitant]
     Dosage: TEXT:1000MG EPA AND 120MG DHA
  6. NITROTAB [Concomitant]
  7. GLUCOSAMINE W/CHONDROITIN SULFATES [Concomitant]
     Dosage: TEXT:TRIPLE STRENGTH
  8. LIPITOR [Concomitant]
     Indication: BLOOD CHOLESTEROL
  9. FISH OIL [Concomitant]

REACTIONS (5)
  - BLOOD PRESSURE INCREASED [None]
  - DISSOCIATION [None]
  - HYPERSENSITIVITY [None]
  - INFUSION SITE REACTION [None]
  - PULMONARY EMBOLISM [None]
